FAERS Safety Report 8710658 (Version 5)
Quarter: 2013Q1

REPORT INFORMATION
  Report Type: Report from Study
  Country: FR (occurrence: FR)
  Receive Date: 20120807
  Receipt Date: 20130306
  Transmission Date: 20140127
  Serious: Yes (Hospitalization, Other)
  Sender: FDA-Public Use
  Company Number: FR-UCBSA-062945

PATIENT
  Age: 63 Year
  Sex: Female
  Weight: 45 kg

DRUGS (3)
  1. CIMZIA [Suspect]
     Indication: RHEUMATOID ARTHRITIS
     Dosage: 400 MG EVERY TWO WEEKS THEN 200 MG EVERY TWO WEEKS
     Route: 058
     Dates: start: 201201, end: 201208
  2. METOJECT [Concomitant]
     Indication: RHEUMATOID ARTHRITIS
     Route: 058
     Dates: start: 2006
  3. CORTANCYL [Concomitant]
     Indication: RHEUMATOID ARTHRITIS
     Dosage: 5 MG
     Route: 048

REACTIONS (4)
  - Pulmonary mass [Not Recovered/Not Resolved]
  - Fracture [Unknown]
  - Haemoglobin decreased [Recovered/Resolved]
  - Weight decreased [Recovered/Resolved]
